FAERS Safety Report 5325672-9 (Version None)
Quarter: 2007Q2

REPORT INFORMATION
  Report Type: 
  Country: None (occurrence: None)
  Receive Date: 20070515
  Receipt Date: 20070503
  Transmission Date: 20071010
  Serious: Yes (Congenital Anomaly, Other)
  Sender: FDA-Public Use
  Company Number: GB-PFIZER INC-2007036556

PATIENT
  Age: 28 Year
  Sex: Female
  Weight: 74 kg

DRUGS (7)
  1. SULFASALAZINE [Suspect]
     Route: 048
     Dates: start: 19990101, end: 20021001
  2. CIMETIDINE HCL [Concomitant]
  3. FEXOFENADINE [Concomitant]
  4. FOLIC ACID [Concomitant]
     Indication: URTICARIA
  5. IBUPROFEN [Concomitant]
     Indication: RHEUMATOID ARTHRITIS
     Route: 048
  6. CHLORPHENIRAMINE MALEATE [Concomitant]
     Route: 048
  7. ORAL CONTRACEPTIVE NOS [Concomitant]
     Route: 048

REACTIONS (1)
  - ABORTION SPONTANEOUS [None]
